FAERS Safety Report 17576572 (Version 1)
Quarter: 2020Q1

REPORT INFORMATION
  Report Type: Spontaneous
  Country: US (occurrence: US)
  Receive Date: 20200324
  Receipt Date: 20200324
  Transmission Date: 20200409
  Serious: No
  Sender: FDA-Public Use
  Company Number: US-ACORDA-ACO_163515_2020

PATIENT
  Age: 84 Year
  Sex: Female

DRUGS (2)
  1. INBRIJA [Suspect]
     Active Substance: LEVODOPA
     Indication: PARKINSON^S DISEASE
     Dosage: 2 CAPSULES, PRN, UPTO 5 TIMES A DAY
     Dates: start: 2019
  2. INBRIJA [Suspect]
     Active Substance: LEVODOPA
     Indication: ON AND OFF PHENOMENON

REACTIONS (5)
  - Device issue [Unknown]
  - Tremor [Unknown]
  - Device use issue [Unknown]
  - Therapy cessation [Unknown]
  - Device breakage [Unknown]

NARRATIVE: CASE EVENT DATE: 201911
